FAERS Safety Report 7301680 (Version 15)
Quarter: 2014Q1

REPORT INFORMATION
  Report Type: Report from Study
  Country: CA (occurrence: CA)
  Receive Date: 20100302
  Receipt Date: 20140219
  Transmission Date: 20141002
  Serious: Yes (Hospitalization, Other)
  Sender: FDA-Public Use
  Company Number: PHHY2010CA09912

PATIENT
  Sex: Male

DRUGS (4)
  1. SANDOSTATIN LAR [Suspect]
     Indication: NEUROENDOCRINE CARCINOMA
     Dosage: 30 MG, EVERY 2 WEEKS
     Route: 030
     Dates: start: 20060511, end: 20060606
  2. SANDOSTATIN LAR [Suspect]
     Dosage: UNK UKN, UNK
     Dates: start: 20080811
  3. SANDOSTATIN LAR [Suspect]
     Dosage: 30 MG, EVERY 2 WEEKS
     Route: 030
     Dates: start: 2008
  4. FERROUS GLUCONATE [Concomitant]
     Dosage: 1-3 DF, A DAY

REACTIONS (23)
  - Cardiac failure congestive [Unknown]
  - Hip fracture [Unknown]
  - Head injury [Unknown]
  - Disorientation [Unknown]
  - Kidney infection [Unknown]
  - Dehydration [Unknown]
  - Asthenia [Unknown]
  - Liver abscess [Unknown]
  - Fall [Unknown]
  - Rectal haemorrhage [Unknown]
  - General physical health deterioration [Not Recovered/Not Resolved]
  - Blood pressure increased [Unknown]
  - Hepatic pain [Unknown]
  - Weight increased [Recovered/Resolved]
  - Injection site mass [Unknown]
  - Injection site swelling [Unknown]
  - Balance disorder [Unknown]
  - Urinary tract infection [Unknown]
  - Local swelling [Unknown]
  - Joint swelling [Unknown]
  - Weight decreased [Recovered/Resolved]
  - Fatigue [Not Recovered/Not Resolved]
  - Hypoglycaemia [Unknown]
